FAERS Safety Report 6085902-5 (Version None)
Quarter: 2009Q1

REPORT INFORMATION
  Report Type: 
  Country: None (occurrence: None)
  Receive Date: 20090220
  Receipt Date: 20090211
  Transmission Date: 20090719
  Serious: Yes (Hospitalization)
  Sender: FDA-Public Use
  Company Number: NL-JNJFOC-20090202999

PATIENT
  Sex: Female

DRUGS (25)
  1. REMICADE [Suspect]
     Route: 042
  2. REMICADE [Suspect]
     Route: 042
  3. REMICADE [Suspect]
     Route: 042
  4. REMICADE [Suspect]
     Route: 042
  5. REMICADE [Suspect]
     Route: 042
  6. REMICADE [Suspect]
     Route: 042
  7. REMICADE [Suspect]
     Route: 042
  8. REMICADE [Suspect]
     Route: 042
  9. REMICADE [Suspect]
     Route: 042
  10. REMICADE [Suspect]
     Route: 042
  11. REMICADE [Suspect]
     Route: 042
  12. REMICADE [Suspect]
     Route: 042
  13. REMICADE [Suspect]
     Route: 042
  14. REMICADE [Suspect]
     Route: 042
  15. REMICADE [Suspect]
     Indication: CROHN'S DISEASE
     Route: 042
  16. SALOFALK [Concomitant]
     Indication: CROHN'S DISEASE
  17. PREDNISONE [Concomitant]
     Indication: CROHN'S DISEASE
  18. NEXIUM [Concomitant]
     Indication: HYPERCHLORHYDRIA
  19. VITAMIN B-12 [Concomitant]
  20. QUESTRAN [Concomitant]
  21. ACTONEL [Concomitant]
     Indication: OSTEOPOROSIS PROPHYLAXIS
  22. BISOPROLOL [Concomitant]
     Indication: HYPERTENSION
  23. COZAAR [Concomitant]
     Indication: HYPERTENSION
  24. HYDROCHLOROTHIAZIDE [Concomitant]
     Indication: HYPERTENSION
  25. OXAZEPAM [Concomitant]

REACTIONS (1)
  - BREAST CANCER [None]
